FAERS Safety Report 6579271-1 (Version None)
Quarter: 2010Q1

REPORT INFORMATION
  Report Type: 
  Country: None (occurrence: None)
  Receive Date: 20100203
  Receipt Date: 20100119
  Transmission Date: 20100710
  Serious: Yes (Hospitalization)
  Sender: FDA-Public Use
  Company Number: 2010BM000025

PATIENT
  Age: 13 Year
  Sex: Female

DRUGS (2)
  1. NAGLAZYME [Suspect]
     Indication: MUCOPOLYSACCHARIDOSIS VI
     Dosage: QW; IVDRP; QW; IVDRP
     Route: 041
     Dates: end: 20091216
  2. NAGLAZYME [Suspect]
     Indication: MUCOPOLYSACCHARIDOSIS VI
     Dosage: QW; IVDRP; QW; IVDRP
     Route: 041
     Dates: start: 20091201

REACTIONS (1)
  - RESPIRATORY FAILURE [None]
